FAERS Safety Report 5314324-7 (Version None)
Quarter: 2007Q2

REPORT INFORMATION
  Report Type: 
  Country: None (occurrence: None)
  Receive Date: 20070502
  Receipt Date: 20070423
  Transmission Date: 20071010
  Serious: Yes (Other)
  Sender: FDA-Public Use
  Company Number: US-JNJFOC-20070204085

PATIENT
  Sex: Male
  Weight: 69.4 kg

DRUGS (12)
  1. REMICADE [Suspect]
     Indication: RHEUMATOID ARTHRITIS
     Dosage: 3 MG/KG TO 7 MG/KG (23 TOTAL DOSES)
     Route: 042
  2. PREDNISONE TAB [Concomitant]
     Dosage: 10 TO 20 MG DAILY (USUALLY 10 MG)
  3. VICODIN [Concomitant]
     Indication: PAIN
     Dosage: 1 TO 2 TABLETS FOUR TIMES DAILY AS NECESSARY
  4. FOLIC ACID [Concomitant]
  5. PLENDIL [Concomitant]
  6. LEVOTHYROXINE SODIUM [Concomitant]
  7. PRILOSEC [Concomitant]
  8. MOBIC [Concomitant]
  9. ASPIRIN [Concomitant]
  10. IRON [Concomitant]
     Indication: NUTRITIONAL SUPPORT
  11. CHEMOTHERAPY [Concomitant]
     Dosage: 9 ROUNDS OF TREATMENT
  12. OXYGEN [Concomitant]

REACTIONS (1)
  - LUNG NEOPLASM MALIGNANT [None]
